FAERS Safety Report 12438116 (Version 1)
Quarter: 2016Q2

REPORT INFORMATION
  Report Type: Spontaneous
  Country: US (occurrence: US)
  Receive Date: 20160606
  Receipt Date: 20160606
  Transmission Date: 20160815
  Serious: No
  Sender: FDA-Public Use
  Company Number: US-ASTRAZENECA-2016SE47727

PATIENT
  Sex: Male
  Weight: 67.6 kg

DRUGS (6)
  1. RHINOCORT [Suspect]
     Active Substance: BUDESONIDE
     Indication: HYPERSENSITIVITY
     Dosage: GENERIC
     Route: 065
  2. FLONASE [Concomitant]
     Active Substance: FLUTICASONE PROPIONATE
  3. RHINOCORT AQUA [Suspect]
     Active Substance: BUDESONIDE
     Indication: HYPERSENSITIVITY
     Dosage: 2 SPRAYS IN EACH NOSTRIL ONCE DAILY
     Route: 045
     Dates: start: 2008
  4. FEXOPHENIDINE [Concomitant]
     Indication: HYPERSENSITIVITY
     Route: 048
  5. RHINOCORT AQUA [Suspect]
     Active Substance: BUDESONIDE
     Indication: HYPERSENSITIVITY
     Route: 045
     Dates: start: 2004
  6. RHINOCORT AQUA [Suspect]
     Active Substance: BUDESONIDE
     Indication: HYPERSENSITIVITY
     Route: 045

REACTIONS (7)
  - Epistaxis [Unknown]
  - Pain [Unknown]
  - Sinus disorder [Unknown]
  - Intentional product misuse [Unknown]
  - Nasal congestion [Unknown]
  - Sinusitis [Unknown]
  - Rhinalgia [Unknown]
